FAERS Safety Report 9523557 (Version 2)
Quarter: 2013Q3

REPORT INFORMATION
  Report Type: Spontaneous
  Country: TR (occurrence: TR)
  Receive Date: 20130913
  Receipt Date: 20130919
  Transmission Date: 20140515
  Serious: Yes (Life-Threatening, Hospitalization)
  Sender: FDA-Public Use
  Company Number: PHHY2013TR098570

PATIENT
  Age: 35 Year
  Sex: Female

DRUGS (2)
  1. METFORMIN [Suspect]
     Dosage: 48 G, (96 PIECES OF 500 MG)
     Route: 048
  2. ROSIGLITAZONE [Suspect]
     Dosage: 108 MG, (27 PIECES OF 4 MG)
     Route: 048

REACTIONS (16)
  - Hypotension [Recovered/Resolved]
  - Hypothermia [Recovered/Resolved]
  - Suicide attempt [Recovered/Resolved]
  - Metabolic acidosis [Recovered/Resolved]
  - Coma scale abnormal [Recovered/Resolved]
  - Respiratory rate increased [Recovered/Resolved]
  - Loss of consciousness [Recovered/Resolved]
  - Nausea [Recovered/Resolved]
  - Vomiting [Recovered/Resolved]
  - Oliguria [Recovered/Resolved]
  - Heart rate increased [Recovered/Resolved]
  - Hepatic enzyme increased [Recovered/Resolved]
  - Blood creatinine increased [Recovered/Resolved]
  - Hypoglycaemia [Recovered/Resolved]
  - Toxicity to various agents [Recovered/Resolved]
  - Intentional overdose [Recovered/Resolved]
